FAERS Safety Report 14222045 (Version 3)
Quarter: 2018Q1

REPORT INFORMATION
  Report Type: Spontaneous
  Country: JP (occurrence: JP)
  Receive Date: 20171124
  Receipt Date: 20180122
  Transmission Date: 20180508
  Serious: Yes (Other)
  Sender: FDA-Public Use
  Company Number: JP-009507513-1711JPN001933J

PATIENT
  Age: 69 Year
  Sex: Female

DRUGS (1)
  1. SINGULAIR [Suspect]
     Active Substance: MONTELUKAST SODIUM
     Indication: RHINITIS ALLERGIC
     Dosage: 10 MG, QD
     Route: 048
     Dates: start: 20151130, end: 20171016

REACTIONS (6)
  - Eye discharge [Recovering/Resolving]
  - Epistaxis [Recovering/Resolving]
  - Haemorrhage subcutaneous [Recovering/Resolving]
  - Epistaxis [Recovering/Resolving]
  - Ocular hyperaemia [Recovering/Resolving]
  - Petechiae [Recovering/Resolving]

NARRATIVE: CASE EVENT DATE: 20170218
